FAERS Safety Report 19023423 (Version 2)
Quarter: 2021Q2

REPORT INFORMATION
  Report Type: Spontaneous
  Country: US (occurrence: US)
  Receive Date: 20210318
  Receipt Date: 20210528
  Transmission Date: 20210717
  Serious: Yes (Hospitalization, Other)
  Sender: FDA-Public Use
  Company Number: US-HIKMA PHARMACEUTICALS USA INC.-US-H14001-21-01080

PATIENT
  Age: 72 Year
  Sex: Female
  Weight: 62 kg

DRUGS (8)
  1. NEUPOGEN [Concomitant]
     Active Substance: FILGRASTIM
     Indication: NEUTROPENIA
     Dosage: UNKNOWN
     Route: 065
  2. LOVENOX [LEVOFLOXACIN] [Concomitant]
     Active Substance: LEVOFLOXACIN
     Indication: PULMONARY EMBOLISM
     Dosage: UNKNOWN
     Route: 065
  3. ELIQUIS [Concomitant]
     Active Substance: APIXABAN
     Indication: PRODUCT USED FOR UNKNOWN INDICATION
     Dosage: UNKNOWN
     Route: 065
  4. LEUCOVORIN TEVA [Suspect]
     Active Substance: LEUCOVORIN
     Indication: PANCREATIC CARCINOMA
     Dosage: 680 MG IN 100 ML. 30 MIN AFTER LIPOSOMAL IRINOTECAN AND PRIOR TO FLUOROURACIL
     Route: 042
     Dates: start: 20201209, end: 20210120
  5. IRINOTECAN [Concomitant]
     Active Substance: IRINOTECAN
     Indication: PRODUCT USED FOR UNKNOWN INDICATION
     Dosage: 85 MG IN 500 ML D5W
     Route: 042
     Dates: start: 20201209, end: 20210120
  6. FLUOROURACIL. [Concomitant]
     Active Substance: FLUOROURACIL
     Indication: PANCREATIC CARCINOMA
     Route: 065
     Dates: start: 20201209, end: 20210120
  7. CEFEPIME [Concomitant]
     Active Substance: CEFEPIME HYDROCHLORIDE
     Indication: PRODUCT USED FOR UNKNOWN INDICATION
     Dosage: UNKNOWN
     Route: 065
  8. OXALIPLATIN. [Concomitant]
     Active Substance: OXALIPLATIN
     Indication: PANCREATIC CARCINOMA
     Dosage: 102 MG IN 500 ML D5W
     Route: 042
     Dates: start: 20201209, end: 20210120

REACTIONS (10)
  - Fall [Recovered/Resolved]
  - Vomiting [Recovered/Resolved]
  - Gastrointestinal wall thickening [Unknown]
  - Neutropenia [Recovered/Resolved]
  - Pulmonary embolism [Unknown]
  - Dehydration [Unknown]
  - Deep vein thrombosis [Unknown]
  - Nausea [Recovering/Resolving]
  - Diarrhoea [Recovered/Resolved with Sequelae]
  - Pain [Not Recovered/Not Resolved]

NARRATIVE: CASE EVENT DATE: 20200902
